FAERS Safety Report 4374137-X (Version None)
Quarter: 2004Q2

REPORT INFORMATION
  Report Type: 
  Country: None (occurrence: None)
  Receive Date: 20040609
  Receipt Date: 20040517
  Transmission Date: 20050107
  Serious: Yes (Hospitalization)
  Sender: FDA-Public Use
  Company Number: 200415170GDDC

PATIENT
  Sex: Male

DRUGS (2)
  1. LANTUS [Suspect]
     Dates: start: 20031001
  2. OPTIPEN (INSULIN PUMP) [Suspect]
     Dates: start: 20031001, end: 20031228

REACTIONS (3)
  - CEREBROVASCULAR ACCIDENT [None]
  - MEDICATION ERROR [None]
  - PHARMACEUTICAL PRODUCT COMPLAINT [None]
